FAERS Safety Report 24870877 (Version 1)
Quarter: 2025Q1

REPORT INFORMATION
  Report Type: Spontaneous
  Country: US (occurrence: US)
  Receive Date: 20250121
  Receipt Date: 20250121
  Transmission Date: 20250409
  Serious: Yes (Death, Hospitalization, Other)
  Sender: ORGANON
  Company Number: US-ORGANON-O2501USA002146

PATIENT
  Age: 48 Year
  Sex: Male

DRUGS (4)
  1. ZETIA [Suspect]
     Active Substance: EZETIMIBE
     Route: 048
  2. AMLODIPINE [Suspect]
     Active Substance: AMLODIPINE BESYLATE
     Route: 048
  3. GUANFACINE [Suspect]
     Active Substance: GUANFACINE
     Route: 048
  4. ACETAMINOPHEN [Suspect]
     Active Substance: ACETAMINOPHEN
     Route: 048

REACTIONS (1)
  - Suspected suicide [Fatal]
